FAERS Safety Report 10477518 (Version 1)
Quarter: 2014Q3

REPORT INFORMATION
  Report Type: Spontaneous
  Country: BR (occurrence: BR)
  Receive Date: 20140926
  Receipt Date: 20140926
  Transmission Date: 20150326
  Serious: Yes (Other)
  Sender: FDA-Public Use
  Company Number: BR-ROCHE-1465834

PATIENT
  Sex: Female

DRUGS (8)
  1. PANCRELIPASE [Suspect]
     Active Substance: PANCRELIPASE
     Indication: CYSTIC FIBROSIS
     Dosage: 25000 UI 14 CAPSULES/DAY
     Route: 065
  2. TOBRAMYCIN [Suspect]
     Active Substance: TOBRAMYCIN
     Indication: CYSTIC FIBROSIS
     Route: 065
  3. VITAMIN K [Concomitant]
     Active Substance: PHYTONADIONE
     Route: 065
  4. PULMOZYME [Suspect]
     Active Substance: DORNASE ALFA
     Indication: CYSTIC FIBROSIS
     Dosage: 1 AMPOULE (2.5 MG)
     Route: 065
  5. VITAMIN A [Concomitant]
     Active Substance: VITAMIN A
     Route: 065
  6. VITAMIN E [Concomitant]
     Active Substance: .ALPHA.-TOCOPHEROL
     Route: 065
  7. COLIMICIN [Suspect]
     Active Substance: COLISTIN SULFATE
     Indication: CYSTIC FIBROSIS
     Dosage: 2 MU
     Route: 065
  8. AZITHROMYCIN [Concomitant]
     Active Substance: AZITHROMYCIN ANHYDROUS
     Indication: CYSTIC FIBROSIS
     Route: 065

REACTIONS (5)
  - Klebsiella infection [Unknown]
  - Treatment noncompliance [Unknown]
  - Purulent discharge [Unknown]
  - Stenotrophomonas infection [Unknown]
  - Atelectasis [Unknown]
